FAERS Safety Report 13987995 (Version 1)
Quarter: 2017Q3

REPORT INFORMATION
  Report Type: Spontaneous
  Country: US (occurrence: US)
  Receive Date: 20170919
  Receipt Date: 20170919
  Transmission Date: 20171128
  Serious: Yes (Other)
  Sender: FDA-Public Use
  Company Number: US-TEVA-807676USA

PATIENT
  Sex: Female
  Weight: 53.57 kg

DRUGS (9)
  1. PROCHLORPERAZINE. [Concomitant]
     Active Substance: PROCHLORPERAZINE
  2. LYRICA [Concomitant]
     Active Substance: PREGABALIN
  3. CYCLOBENZAPRINE. [Concomitant]
     Active Substance: CYCLOBENZAPRINE
  4. ZOFRAN [Concomitant]
     Active Substance: ONDANSETRON HYDROCHLORIDE
  5. FENTORA [Suspect]
     Active Substance: FENTANYL CITRATE
     Indication: CANCER PAIN
     Dosage: AM, NOON, PM
     Route: 002
  6. FAMOTIDINE. [Concomitant]
     Active Substance: FAMOTIDINE
  7. OPANA [Concomitant]
     Active Substance: OXYMORPHONE HYDROCHLORIDE
  8. OXYCODONE [Concomitant]
     Active Substance: OXYCODONE
  9. SORAFENIB [Concomitant]
     Active Substance: SORAFENIB

REACTIONS (4)
  - Staphylococcal infection [Unknown]
  - Drug effect decreased [Unknown]
  - Pain in extremity [Unknown]
  - Vaginal haemorrhage [Unknown]
